FAERS Safety Report 7738660-X (Version None)
Quarter: 2011Q3

REPORT INFORMATION
  Report Type: 
  Country: None (occurrence: None)
  Receive Date: 20110908
  Receipt Date: 20110906
  Transmission Date: 20111222
  Serious: Yes (Hospitalization)
  Sender: FDA-Public Use
  Company Number: GB-MERCK-1106GBR00057

PATIENT
  Age: 71 Year
  Sex: Male

DRUGS (2)
  1. CANDESARTAN [Concomitant]
     Indication: HYPERTENSION
     Route: 065
  2. ZOCOR [Suspect]
     Indication: HYPERCHOLESTEROLAEMIA
     Route: 048
     Dates: start: 20110305, end: 20110523

REACTIONS (5)
  - RENAL FAILURE ACUTE [None]
  - VOMITING [None]
  - DIARRHOEA [None]
  - HYPOTENSION [None]
  - LIVER DISORDER [None]
